FAERS Safety Report 5918638-9 (Version None)
Quarter: 2008Q4

REPORT INFORMATION
  Report Type: 
  Country: None (occurrence: None)
  Receive Date: 20081010
  Receipt Date: 20080930
  Transmission Date: 20090506
  Serious: Yes (Other)
  Sender: FDA-Public Use
  Company Number: CHNY2008AU03600

PATIENT
  Sex: Male

DRUGS (1)
  1. NICOTINE [Suspect]
     Dosage: 2 MG, CHEWED

REACTIONS (3)
  - ACNE [None]
  - DRUG DEPENDENCE [None]
  - HEAT RASH [None]
